FAERS Safety Report 12090552 (Version 1)
Quarter: 2016Q1

REPORT INFORMATION
  Report Type: Spontaneous
  Country: GB (occurrence: GB)
  Receive Date: 20160218
  Receipt Date: 20160218
  Transmission Date: 20160526
  Serious: Yes (Other)
  Sender: FDA-Public Use
  Company Number: GB-TEVA-633913ACC

PATIENT
  Age: 68 Year
  Sex: Female
  Weight: 114 kg

DRUGS (15)
  1. ADCAL [Concomitant]
     Dosage: 2 DOSAGE FORMS DAILY;
     Dates: start: 20150928, end: 20151117
  2. PARACETAMOL [Concomitant]
     Active Substance: ACETAMINOPHEN
     Dosage: TAKE 1 OR 2
     Dates: start: 20160105
  3. PEPPERMINT OIL [Concomitant]
     Active Substance: PEPPERMINT OIL
     Dosage: 3 DOSAGE FORMS DAILY;
     Dates: start: 20150928
  4. ATENOLOL. [Concomitant]
     Active Substance: ATENOLOL
     Dosage: 1 DOSAGE FORMS DAILY;
     Dates: start: 20150928
  5. BUMETANIDE. [Concomitant]
     Active Substance: BUMETANIDE
     Dosage: 1 DOSAGE FORMS DAILY;
     Dates: start: 20150928
  6. ISPAGHULA EXTRACT\PSYLLIUM [Concomitant]
     Active Substance: PLANTAGO OVATA SEED\PLANTAGO SEED
     Dosage: DISSOLVE THE CONTENTS OF ONE SACHET IN WATER AN...
     Dates: start: 20160105, end: 20160115
  7. PANTOPRAZOLE [Concomitant]
     Active Substance: PANTOPRAZOLE SODIUM
     Dosage: 1 DOSAGE FORMS DAILY;
     Dates: start: 20150928
  8. ACCRETE D3 [Concomitant]
     Dosage: 2 DOSAGE FORMS DAILY;
     Dates: start: 20151117
  9. ROSUVASTATIN [Concomitant]
     Active Substance: ROSUVASTATIN
     Dosage: 1 DOSAGE FORMS DAILY;
     Dates: start: 20150928
  10. DULOXETINE. [Suspect]
     Active Substance: DULOXETINE
     Dates: start: 20150928
  11. SELENIUM SULFIDE. [Concomitant]
     Active Substance: SELENIUM SULFIDE
     Dosage: USE AS DIRECTED
     Dates: start: 20151208, end: 20151209
  12. CODEINE PHOSPHATE [Concomitant]
     Active Substance: CODEINE PHOSPHATE
     Dosage: TAKE ONE OR 2
     Dates: start: 20160105, end: 20160117
  13. GAVISCON [Concomitant]
     Active Substance: ALUMINUM HYDROXIDE\MAGNESIUM CARBONATE
     Dosage: 1-2  TO BE TAKEN FOUR TIMES DAILY AS REQUIRED
     Dates: start: 20150928
  14. PIROXICAM. [Concomitant]
     Active Substance: PIROXICAM
     Dates: start: 20150928
  15. SUNVIT-D3 [Concomitant]
     Dates: start: 20160112

REACTIONS (2)
  - Nausea [Recovered/Resolved]
  - Incontinence [Recovered/Resolved]

NARRATIVE: CASE EVENT DATE: 20160201
